FAERS Safety Report 4584426-1 (Version None)
Quarter: 2005Q1

REPORT INFORMATION
  Report Type: 
  Country: None (occurrence: None)
  Receive Date: 20050125
  Receipt Date: 20041110
  Transmission Date: 20050727
  Serious: No
  Sender: FDA-Public Use
  Company Number: USA041183820

PATIENT
  Age: 59 Year
  Sex: Female

DRUGS (2)
  1. FORTEO [Suspect]
     Dates: start: 20031101
  2. OSCAL (CALCIUM CARBONATE) [Concomitant]

REACTIONS (3)
  - BLOOD CALCIUM INCREASED [None]
  - FALL [None]
  - WRIST FRACTURE [None]
